FAERS Safety Report 8836257 (Version 2)
Quarter: 2012Q4

REPORT INFORMATION
  Report Type: 
  Country: FR (occurrence: FR)
  Receive Date: 20121011
  Receipt Date: 20121205
  Transmission Date: 20130627
  Serious: Yes (Hospitalization)
  Sender: FDA-Public Use
  Company Number: FR-ASTRAZENECA-2012SE76980

PATIENT
  Age: 55 Year
  Sex: Female

DRUGS (9)
  1. CRESTOR [Suspect]
     Indication: DYSLIPIDAEMIA
     Route: 048
  2. ARAVA [Suspect]
     Indication: RHEUMATOID ARTHRITIS
     Route: 048
     Dates: start: 201005
  3. DAFALGAN [Suspect]
     Route: 048
  4. ENBREL [Suspect]
     Indication: RHEUMATOID ARTHRITIS
     Route: 058
     Dates: start: 201205, end: 20120825
  5. OGASTORO [Suspect]
     Indication: GASTROINTESTINAL DISORDER
     Route: 048
  6. PROFENID [Suspect]
     Route: 048
  7. SULFARLEM [Suspect]
     Route: 048
  8. ARTISIAL [Suspect]
     Route: 048
  9. KESTINE [Suspect]
     Route: 048

REACTIONS (5)
  - Cough [Not Recovered/Not Resolved]
  - Rheumatoid arthritis [Unknown]
  - Restrictive pulmonary disease [Unknown]
  - Sjogren^s syndrome [Unknown]
  - Dermatitis allergic [Unknown]
